FAERS Safety Report 11165798 (Version 1)
Quarter: 2015Q2

REPORT INFORMATION
  Report Type: Spontaneous
  Country: US (occurrence: None)
  Receive Date: 20150603
  Receipt Date: 20150603
  Transmission Date: 20150821
  Serious: Yes (Disabling, Other)
  Sender: FDA-Public Use
  Company Number: None

PATIENT
  Age: 69 Year
  Sex: Male
  Weight: 188 kg

DRUGS (1)
  1. ETODOLAC. [Suspect]
     Active Substance: ETODOLAC

REACTIONS (1)
  - Drug prescribing error [None]

NARRATIVE: CASE EVENT DATE: 20150428
